FAERS Safety Report 9907855 (Version 2)
Quarter: 2014Q2

REPORT INFORMATION
  Report Type: Spontaneous
  Country: US (occurrence: US)
  Receive Date: 20140219
  Receipt Date: 20140501
  Transmission Date: 20141212
  Serious: No
  Sender: FDA-Public Use
  Company Number: US-BIOGENIDEC-2014BI014228

PATIENT
  Age: 66 Year
  Sex: Male

DRUGS (13)
  1. TECFIDERA [Suspect]
     Indication: MULTIPLE SCLEROSIS
     Route: 048
     Dates: start: 20140128
  2. AVODART [Concomitant]
  3. BACLOFEN [Concomitant]
  4. CITALOPRAM HYDROBROMIDE [Concomitant]
  5. CLONAZEPAM [Concomitant]
  6. FLOMAX [Concomitant]
  7. GLYCOLAX [Concomitant]
  8. HYDROCODONE-ACETAMINOPHEN [Concomitant]
  9. LISINOPRIL [Concomitant]
  10. SIMVASTATIN [Concomitant]
  11. TRILEPTAL [Concomitant]
  12. VESICARE [Concomitant]
  13. WARFARIN SODIUM [Concomitant]

REACTIONS (3)
  - Medication error [Unknown]
  - Flushing [Unknown]
  - Abdominal discomfort [Unknown]
